FAERS Safety Report 5758275-2 (Version None)
Quarter: 2008Q2

REPORT INFORMATION
  Report Type: 
  Country: None (occurrence: None)
  Receive Date: 20080604
  Receipt Date: 20080523
  Transmission Date: 20081010
  Serious: Yes (Other)
  Sender: FDA-Public Use
  Company Number: US-WYE-H01571107

PATIENT
  Age: 75 Year
  Sex: Female
  Weight: 65.83 kg

DRUGS (5)
  1. PREMARIN [Suspect]
     Indication: HOT FLUSH
     Route: 048
     Dates: start: 20071029, end: 20071130
  2. PREMARIN [Suspect]
     Indication: AFFECT LABILITY
     Route: 048
     Dates: start: 20070101, end: 20071001
  3. LEVOXYL [Concomitant]
     Indication: HYPOTHYROIDISM
     Dosage: 75MG: 1/2 TABLET DAILY
     Route: 048
     Dates: start: 20070403
  4. HYDROCHLOROTHIAZIDE [Concomitant]
     Indication: OEDEMA
     Dosage: 25MG: 1/2 TABLET DAILY
     Route: 048
     Dates: start: 20050101
  5. THYROID TAB [Concomitant]
     Indication: HYPOTHYROIDISM
     Route: 048
     Dates: start: 19870101

REACTIONS (6)
  - DRUG INEFFECTIVE [None]
  - DRUG INTOLERANCE [None]
  - LETHARGY [None]
  - MOOD ALTERED [None]
  - SUICIDAL IDEATION [None]
  - WRONG TECHNIQUE IN DRUG USAGE PROCESS [None]
